FAERS Safety Report 9882530 (Version 1)
Quarter: 2014Q1

REPORT INFORMATION
  Report Type: Spontaneous
  Country: KR (occurrence: KR)
  Receive Date: 20140207
  Receipt Date: 20140207
  Transmission Date: 20141002
  Serious: Yes (Other)
  Sender: FDA-Public Use
  Company Number: KR-NAPPMUNDI-GBR-2014-0016949

PATIENT
  Sex: 0

DRUGS (2)
  1. NORSPAN [Suspect]
     Indication: PRODUCT USED FOR UNKNOWN INDICATION
     Dosage: UNK
     Route: 062
  2. BENZODIAZEPINE DERIVATIVES [Concomitant]

REACTIONS (1)
  - Delirium [Unknown]
